FAERS Safety Report 21978130 (Version 1)
Quarter: 2023Q1

REPORT INFORMATION
  Report Type: Spontaneous
  Country: CA (occurrence: CA)
  Receive Date: 20230210
  Receipt Date: 20230210
  Transmission Date: 20230418
  Serious: Yes (Other)
  Sender: FDA-Public Use
  Company Number: CA-PFIZER INC-202300060455

PATIENT
  Age: 67 Year
  Sex: Female

DRUGS (7)
  1. METHOTREXATE SODIUM [Suspect]
     Active Substance: METHOTREXATE SODIUM
  2. SIMPONI [Concomitant]
     Active Substance: GOLIMUMAB
  3. LEFLUNOMIDE [Concomitant]
     Active Substance: LEFLUNOMIDE
  4. DULOXETINE [Concomitant]
     Active Substance: DULOXETINE
  5. IRON [Concomitant]
     Active Substance: IRON
  6. VITAMIN C [Concomitant]
     Active Substance: ASCORBIC ACID
  7. VIT D [VITAMIN D NOS] [Concomitant]

REACTIONS (2)
  - Nodule [Unknown]
  - Liver function test increased [Unknown]
